FAERS Safety Report 4863341-X (Version None)
Quarter: 2005Q4

REPORT INFORMATION
  Report Type: 
  Country: None (occurrence: None)
  Receive Date: 20051222
  Receipt Date: 20051215
  Transmission Date: 20060501
  Serious: Yes (Hospitalization)
  Sender: FDA-Public Use
  Company Number: US-JNJFOC-20051204046

PATIENT
  Sex: Female
  Weight: 95.26 kg

DRUGS (3)
  1. REMICADE [Suspect]
     Indication: RHEUMATOID ARTHRITIS
     Route: 042
  2. METHOTREXATE [Concomitant]
  3. GOLD COMPOUNDS [Concomitant]

REACTIONS (2)
  - FOOT AMPUTATION [None]
  - STAPHYLOCOCCAL INFECTION [None]
